FAERS Safety Report 14083977 (Version 2)
Quarter: 2017Q4

REPORT INFORMATION
  Report Type: Report from Study
  Country: None (occurrence: US)
  Receive Date: 20171013
  Receipt Date: 20171221
  Transmission Date: 20180321
  Serious: Yes (Other)
  Sender: FDA-Public Use
  Company Number: US-ABBVIE-17K-163-2124918-00

PATIENT
  Sex: Male

DRUGS (1)
  1. HUMIRA [Suspect]
     Active Substance: ADALIMUMAB
     Indication: CROHN^S DISEASE
     Route: 058

REACTIONS (5)
  - Crohn^s disease [Unknown]
  - Gastrointestinal fistula [Unknown]
  - Gastrointestinal disorder postoperative [Unknown]
  - Full blood count decreased [Recovered/Resolved]
  - White blood cell count decreased [Recovered/Resolved]
